FAERS Safety Report 13666585 (Version 1)
Quarter: 2017Q2

REPORT INFORMATION
  Report Type: Spontaneous
  Country: US (occurrence: US)
  Receive Date: 20170619
  Receipt Date: 20170619
  Transmission Date: 20170830
  Serious: Yes (Other)
  Sender: FDA-Public Use
  Company Number: US-ROCHE-731790

PATIENT
  Age: 76 Year
  Sex: Female
  Weight: 65.6 kg

DRUGS (2)
  1. XELODA [Suspect]
     Active Substance: CAPECITABINE
     Dosage: LOWERED DOSAGE
     Route: 048
  2. XELODA [Suspect]
     Active Substance: CAPECITABINE
     Indication: COLON CANCER
     Route: 048

REACTIONS (7)
  - Feeling hot [Unknown]
  - Stomatitis [Unknown]
  - Pain in extremity [Unknown]
  - Diarrhoea [Unknown]
  - Palmar-plantar erythrodysaesthesia syndrome [Recovering/Resolving]
  - Skin fissures [Unknown]
  - Nausea [Recovering/Resolving]

NARRATIVE: CASE EVENT DATE: 201009
